FAERS Safety Report 9782629 (Version 1)
Quarter: 2013Q4

REPORT INFORMATION
  Report Type: Spontaneous
  Country: FR (occurrence: None)
  Receive Date: 20131220
  Receipt Date: 20131220
  Transmission Date: 20140711
  Serious: Yes (Hospitalization)
  Sender: FDA-Public Use
  Company Number: 1954873

PATIENT
  Age: 54 Year
  Sex: Female

DRUGS (5)
  1. CARBOPLATIN [Suspect]
     Indication: OVARIAN CANCER
     Route: 042
     Dates: start: 20120228, end: 20120228
  2. POLARAMINE [Concomitant]
  3. METHYLPREDNISOLON MERCK [Concomitant]
  4. ZOPHREN [Concomitant]
  5. AZANTAC [Concomitant]

REACTIONS (3)
  - Paraesthesia [None]
  - Erythema [None]
  - Hot flush [None]
